FAERS Safety Report 12320676 (Version 2)
Quarter: 2016Q2

REPORT INFORMATION
  Report Type: Spontaneous
  Country: FR (occurrence: FR)
  Receive Date: 20160501
  Receipt Date: 20160506
  Transmission Date: 20160815
  Serious: Yes (Hospitalization, Other)
  Sender: FDA-Public Use
  Company Number: FR-ROCHE-1749590

PATIENT
  Age: 83 Year
  Sex: Female

DRUGS (17)
  1. LEXOMIL [Concomitant]
     Active Substance: BROMAZEPAM
  2. SERC (FRANCE) [Concomitant]
  3. FLUOROURACIL. [Concomitant]
     Active Substance: FLUOROURACIL
  4. OXALIPLATINE [Suspect]
     Active Substance: OXALIPLATIN
     Indication: PRODUCT USED FOR UNKNOWN INDICATION
     Route: 042
  5. LUDIOMIL [Concomitant]
     Active Substance: MAPROTILINE HYDROCHLORIDE
  6. SIMVASTATINE [Concomitant]
     Active Substance: SIMVASTATIN
  7. DUPHALAC (FRANCE) [Concomitant]
  8. LOXEN (FRANCE) [Concomitant]
     Active Substance: NICARDIPINE HYDROCHLORIDE
  9. ESOMEPRAZOLE [Concomitant]
     Active Substance: ESOMEPRAZOLE
  10. SIMVASTATINE [Concomitant]
     Active Substance: SIMVASTATIN
  11. LEVOFOLINATE [Suspect]
     Active Substance: LEVOLEUCOVORIN CALCIUM
     Indication: PRODUCT USED FOR UNKNOWN INDICATION
     Route: 040
  12. IZALGI [Concomitant]
  13. LEVOTHYROX [Concomitant]
     Active Substance: LEVOTHYROXINE
     Route: 065
  14. FOLINIC ACID [Concomitant]
     Active Substance: LEUCOVORIN
  15. AVASTIN [Suspect]
     Active Substance: BEVACIZUMAB
     Indication: PRODUCT USED FOR UNKNOWN INDICATION
     Route: 041
  16. AVASTIN [Suspect]
     Active Substance: BEVACIZUMAB
     Dosage: CYCLE 5
     Route: 041
     Dates: start: 20160405, end: 20160411
  17. FOSAMAX [Concomitant]
     Active Substance: ALENDRONATE SODIUM

REACTIONS (3)
  - Capillaritis [Recovering/Resolving]
  - Thrombophlebitis [Recovering/Resolving]
  - Vascular purpura [Recovering/Resolving]

NARRATIVE: CASE EVENT DATE: 20160405
